FAERS Safety Report 6234957-3 (Version None)
Quarter: 2009Q2

REPORT INFORMATION
  Report Type: 
  Country: None (occurrence: None)
  Receive Date: 20090618
  Receipt Date: 20090610
  Transmission Date: 20091009
  Serious: Yes (Other)
  Sender: FDA-Public Use
  Company Number: B0579370A

PATIENT
  Age: 57 Year
  Sex: Female

DRUGS (2)
  1. VENTOLIN [Suspect]
     Indication: DRUG USE FOR UNKNOWN INDICATION
     Route: 055
  2. SERETIDE [Concomitant]
     Route: 055

REACTIONS (3)
  - DRUG HYPERSENSITIVITY [None]
  - TERMINAL STATE [None]
  - WHEEZING [None]
